FAERS Safety Report 10172926 (Version 2)
Quarter: 2014Q2

REPORT INFORMATION
  Report Type: Spontaneous
  Country: US (occurrence: US)
  Receive Date: 20140515
  Receipt Date: 20140613
  Transmission Date: 20141212
  Serious: Yes (Hospitalization, Other)
  Sender: FDA-Public Use
  Company Number: US-JNJFOC-20140504488

PATIENT
  Age: 78 Year
  Sex: Male
  Weight: 92.53 kg

DRUGS (6)
  1. XARELTO [Suspect]
     Indication: INTRACRANIAL VENOUS SINUS THROMBOSIS
     Route: 048
     Dates: start: 2013, end: 2014
  2. XARELTO [Suspect]
     Indication: INTRACRANIAL VENOUS SINUS THROMBOSIS
     Route: 048
  3. XARELTO [Suspect]
     Indication: ATRIAL FIBRILLATION
     Route: 048
     Dates: start: 2013, end: 2014
  4. XARELTO [Suspect]
     Indication: ATRIAL FIBRILLATION
     Route: 048
  5. XARELTO [Suspect]
     Indication: CEREBROVASCULAR ACCIDENT PROPHYLAXIS
     Route: 048
  6. XARELTO [Suspect]
     Indication: CEREBROVASCULAR ACCIDENT PROPHYLAXIS
     Route: 048
     Dates: start: 2013, end: 2014

REACTIONS (3)
  - Cerebrovascular accident [Unknown]
  - Haemoglobin decreased [Recovering/Resolving]
  - Gastrointestinal haemorrhage [Recovering/Resolving]
